FAERS Safety Report 17151972 (Version 2)
Quarter: 2020Q1

REPORT INFORMATION
  Report Type: Report from Study
  Country: US (occurrence: US)
  Receive Date: 20191213
  Receipt Date: 20200304
  Transmission Date: 20200409
  Serious: Yes (Hospitalization)
  Sender: FDA-Public Use
  Company Number: US-B.I. PHARMACEUTICALS,INC./RIDGEFIELD-2019-BI-114144

PATIENT
  Sex: Female
  Weight: 48.08 kg

DRUGS (3)
  1. PLAVIX [Concomitant]
     Active Substance: CLOPIDOGREL BISULFATE
     Indication: ANTIPLATELET THERAPY
     Route: 065
  2. OFEV [Suspect]
     Active Substance: NINTEDANIB
     Indication: IDIOPATHIC PULMONARY FIBROSIS
     Route: 048
     Dates: start: 20191018
  3. BABY ASPIRIN [Concomitant]
     Active Substance: ASPIRIN
     Indication: ANTIPLATELET THERAPY
     Route: 065

REACTIONS (10)
  - Internal haemorrhage [Recovered/Resolved]
  - Confusional state [Unknown]
  - Urine abnormality [Unknown]
  - Faeces discoloured [Unknown]
  - Fall [Unknown]
  - Ulcer [Unknown]
  - Dysstasia [Unknown]
  - Asthenia [Unknown]
  - White blood cell count increased [Unknown]
  - Kidney infection [Unknown]

NARRATIVE: CASE EVENT DATE: 2019
